FAERS Safety Report 4919454-7 (Version None)
Quarter: 2006Q1

REPORT INFORMATION
  Report Type: 
  Country: None (occurrence: None)
  Receive Date: 20060222
  Receipt Date: 20051207
  Transmission Date: 20060701
  Serious: Yes (Death, Hospitalization, Other)
  Sender: FDA-Public Use
  Company Number: US-MERCK-0512USA01354

PATIENT
  Age: 69 Year
  Sex: Male

DRUGS (6)
  1. VIOXX [Suspect]
     Indication: OSTEOARTHRITIS
     Route: 048
     Dates: start: 20000801
  2. VIOXX [Suspect]
     Route: 065
     Dates: start: 20040501
  3. VIOXX [Suspect]
     Route: 048
     Dates: start: 20001101, end: 20040801
  4. VIOXX [Suspect]
     Indication: ARTHRITIS
     Route: 048
     Dates: start: 20000801
  5. VIOXX [Suspect]
     Route: 065
     Dates: start: 20040501
  6. VIOXX [Suspect]
     Route: 048
     Dates: start: 20001101, end: 20040801

REACTIONS (19)
  - ARRHYTHMIA [None]
  - ATRIAL FIBRILLATION [None]
  - CHEST DISCOMFORT [None]
  - CHEST PAIN [None]
  - CHRONIC OBSTRUCTIVE PULMONARY DISEASE [None]
  - DIABETES MELLITUS INSULIN-DEPENDENT [None]
  - DIABETIC FOOT [None]
  - DIABETIC FOOT INFECTION [None]
  - HYPERTENSION [None]
  - MULTI-ORGAN FAILURE [None]
  - MYOCARDIAL INFARCTION [None]
  - OESOPHAGEAL SPASM [None]
  - RENAL FAILURE ACUTE [None]
  - RIGHT VENTRICULAR FAILURE [None]
  - SEPSIS [None]
  - SYNCOPE [None]
  - TACHYARRHYTHMIA [None]
  - TOE AMPUTATION [None]
  - ULCER [None]
